FAERS Safety Report 15554008 (Version 1)
Quarter: 2018Q4

REPORT INFORMATION
  Report Type: Report from Study
  Country: None (occurrence: US)
  Receive Date: 20181026
  Receipt Date: 20181026
  Transmission Date: 20190205
  Serious: Yes (Other)
  Sender: FDA-Public Use
  Company Number: US-ABBVIE-18K-163-2379423-00

PATIENT
  Age: 22 Year
  Sex: Female

DRUGS (1)
  1. HUMIRA [Suspect]
     Active Substance: ADALIMUMAB
     Indication: CROHN^S DISEASE
     Route: 058

REACTIONS (4)
  - Therapeutic response shortened [Unknown]
  - Pharyngitis streptococcal [Recovering/Resolving]
  - Sinusitis [Recovering/Resolving]
  - Hepatobiliary scan abnormal [Recovered/Resolved]

NARRATIVE: CASE EVENT DATE: 201810
